FAERS Safety Report 8799522 (Version 1)
Quarter: 2012Q4

REPORT INFORMATION
  Report Type: 
  Country: US (occurrence: US)
  Receive Date: 20120919
  Receipt Date: 20120919
  Transmission Date: 20130627
  Serious: No
  Sender: FDA-Public Use
  Company Number: US-PFIZER INC-2012230008

PATIENT
  Age: 83 Year
  Sex: Female

DRUGS (13)
  1. CELEBREX [Suspect]
     Dosage: 200 mg, 1x/day (1 daily with food)
     Dates: start: 20120315
  2. ARICEPT [Concomitant]
     Dosage: 10 mg, 1x/day (1 tablet)
  3. FUROSEMIDE [Concomitant]
     Dosage: 40 mg, 1x/day (1 tablet every morning)
  4. ISOSORBIDE MONONITRATE [Concomitant]
     Dosage: 60 mg, 1x/day (1 tablet)
     Dates: start: 20120605
  5. LEVOTHROID [Concomitant]
     Dosage: 150 ug, 1x/day (1 tablet)
  6. LISINOPRIL [Concomitant]
     Dosage: 5 mg, 1x/day (1tablet)
  7. METHOCARBAMOL [Concomitant]
     Dosage: 500 mg, 4x/day (1 tablet)
     Dates: start: 20110929
  8. NAMENDA [Concomitant]
     Dosage: 10 mg, 2x/day (1 tablet)
  9. SEROQUEL [Concomitant]
     Dosage: 100 mg, 1x/day (1 tablet at bedtime)
  10. SERTRALINE [Concomitant]
     Dosage: 100 mg, 1x/day (1tablet)
     Dates: start: 20100823
  11. SIMVASTATIN [Concomitant]
     Dosage: 10 mg, 1x/day (1 tablet at bedtime)
  12. TRAMADOL [Concomitant]
     Indication: PAIN
     Dosage: 50 mg, as needed, 1tablet every eight hours
  13. TYLENOL ARTHRITIS [Concomitant]
     Dosage: 650 mg, take 2 tablet twice a day
     Dates: start: 20120216

REACTIONS (3)
  - Fatigue [Unknown]
  - Malaise [Unknown]
  - Weight increased [Unknown]
